FAERS Safety Report 6272924-4 (Version None)
Quarter: 2009Q3

REPORT INFORMATION
  Report Type: 
  Country: None (occurrence: None)
  Receive Date: 20090717
  Receipt Date: 20090706
  Transmission Date: 20100115
  Serious: Yes (Other)
  Sender: FDA-Public Use
  Company Number: GB-PFIZER INC-2009236099

PATIENT
  Age: 38 Year

DRUGS (3)
  1. CHAMPIX [Suspect]
     Indication: SMOKING CESSATION THERAPY
     Dosage: 1 MG, 2X/DAY
     Route: 048
     Dates: start: 20090512, end: 20090617
  2. CERAZETTE [Concomitant]
  3. MAXALT [Concomitant]

REACTIONS (2)
  - CRYING [None]
  - DEPRESSED MOOD [None]
